FAERS Safety Report 4735774-3 (Version None)
Quarter: 2005Q3

REPORT INFORMATION
  Report Type: 
  Country: None (occurrence: None)
  Receive Date: 20050805
  Receipt Date: 20050726
  Transmission Date: 20060218
  Serious: Yes (Other)
  Sender: FDA-Public Use
  Company Number: US-JNJFOC-20050706192

PATIENT
  Age: 20 Year
  Sex: Female
  Weight: 54.43 kg

DRUGS (2)
  1. ORTHO EVRA [Suspect]
     Indication: OFF LABEL USE
     Route: 062
     Dates: start: 20040101
  2. ORTHO EVRA [Suspect]
     Indication: ENDOMETRIOSIS
     Route: 062
     Dates: start: 20040101

REACTIONS (2)
  - GRAND MAL CONVULSION [None]
  - PETIT MAL EPILEPSY [None]
